FAERS Safety Report 9736678 (Version 1)
Quarter: 2013Q4

REPORT INFORMATION
  Report Type: Spontaneous
  Country: US (occurrence: US)
  Receive Date: 20131206
  Receipt Date: 20131206
  Transmission Date: 20140711
  Serious: No
  Sender: FDA-Public Use
  Company Number: US-GILEAD-2009-0023302

PATIENT
  Sex: Female
  Weight: 88 kg

DRUGS (9)
  1. LETAIRIS [Suspect]
     Indication: PULMONARY ARTERIAL HYPERTENSION
     Route: 048
     Dates: start: 20090701
  2. NORVASC [Concomitant]
  3. LOPRESSOR [Concomitant]
  4. ZOCOR [Concomitant]
  5. TRICIR [Concomitant]
  6. AGGRENOX [Concomitant]
  7. NEXIUM [Concomitant]
  8. EVISTA [Concomitant]
  9. REQUIP [Concomitant]

REACTIONS (2)
  - Decreased appetite [Unknown]
  - Dyspnoea [Unknown]
